FAERS Safety Report 7384176-2 (Version None)
Quarter: 2011Q1

REPORT INFORMATION
  Report Type: 
  Country: None (occurrence: None)
  Receive Date: 20110330
  Receipt Date: 20110325
  Transmission Date: 20110831
  Serious: Yes (Hospitalization)
  Sender: FDA-Public Use
  Company Number: B0708476A

PATIENT
  Sex: Female

DRUGS (5)
  1. SERTRALINE HYDROCHLORIDE [Concomitant]
     Route: 065
  2. KESTIN [Concomitant]
     Route: 065
  3. TERALITHE [Concomitant]
     Route: 065
  4. KARDEGIC [Concomitant]
     Route: 065
  5. LAMICTAL [Suspect]
     Indication: BIPOLAR DISORDER
     Route: 048
     Dates: start: 20110111, end: 20110222

REACTIONS (9)
  - SKIN LESION [None]
  - FACE OEDEMA [None]
  - HEPATOCELLULAR INJURY [None]
  - PYREXIA [None]
  - EPIDERMAL NECROSIS [None]
  - DRUG RASH WITH EOSINOPHILIA AND SYSTEMIC SYMPTOMS [None]
  - LYMPHADENOPATHY [None]
  - RASH MACULO-PAPULAR [None]
  - DRUG ERUPTION [None]
